FAERS Safety Report 8948078 (Version 2)
Quarter: 2013Q1

REPORT INFORMATION
  Report Type: Spontaneous
  Country: US (occurrence: US)
  Receive Date: 20121204
  Receipt Date: 20130114
  Transmission Date: 20140127
  Serious: Yes (Death, Hospitalization)
  Sender: FDA-Public Use
  Company Number: US-GLAXOSMITHKLINE-A0873440A

PATIENT
  Age: 54 Year
  Sex: Female

DRUGS (4)
  1. AVANDIA [Suspect]
     Indication: DIABETES MELLITUS
     Dosage: 4MG THREE TIMES PER DAY
     Route: 048
     Dates: start: 20041208, end: 20050920
  2. TOPROL XL [Concomitant]
  3. LIPITOR [Concomitant]
  4. ASPIRIN [Concomitant]

REACTIONS (5)
  - Death [Fatal]
  - Myocardial infarction [Unknown]
  - Renal failure [Unknown]
  - Cardiac failure congestive [Unknown]
  - Coronary arterial stent insertion [Unknown]
